FAERS Safety Report 10160216 (Version 2)
Quarter: 2015Q2

REPORT INFORMATION
  Report Type: Spontaneous
  Country: US (occurrence: US)
  Receive Date: 20140508
  Receipt Date: 20150609
  Transmission Date: 20150821
  Serious: Yes (Death, Disabling)
  Sender: FDA-Public Use
  Company Number: US-BAYER-2014-064868

PATIENT
  Age: 52 Year
  Sex: Female

DRUGS (1)
  1. YAZ [Suspect]
     Active Substance: DROSPIRENONE\ETHINYL ESTRADIOL
     Dosage: UNK
     Dates: start: 2002, end: 2003

REACTIONS (8)
  - Emotional distress [None]
  - Death [Fatal]
  - Anxiety [None]
  - Mental disorder [None]
  - Intracardiac thrombus [None]
  - Injury [None]
  - Pain [None]
  - Fear of death [None]

NARRATIVE: CASE EVENT DATE: 20030119
